FAERS Safety Report 9163346 (Version 9)
Quarter: 2013Q3

REPORT INFORMATION
  Report Type: Report from Study
  Country: IT (occurrence: IT)
  Receive Date: 20130314
  Receipt Date: 20130722
  Transmission Date: 20140515
  Serious: Yes (Hospitalization)
  Sender: FDA-Public Use
  Company Number: IT-ROCHE-1201814

PATIENT
  Age: 54 Year
  Sex: Male
  Weight: 80 kg

DRUGS (10)
  1. PEG-INTERFERON ALFA 2A [Suspect]
     Indication: CHRONIC HEPATITIS C
     Route: 058
     Dates: start: 20130218, end: 20130304
  2. PEG-INTERFERON ALFA 2A [Suspect]
     Route: 058
     Dates: start: 20130322
  3. RIBAVIRIN [Suspect]
     Indication: CHRONIC HEPATITIS C
     Route: 048
     Dates: start: 20130218
  4. TELAPREVIR [Suspect]
     Indication: CHRONIC HEPATITIS C
     Route: 048
     Dates: start: 20130218
  5. DEURSIL [Concomitant]
  6. PARIET [Concomitant]
  7. CARVEDILOL [Concomitant]
  8. AMLODIPINE [Concomitant]
  9. KAYEXALATE [Concomitant]
  10. INSULINA [Concomitant]

REACTIONS (2)
  - Ascites [Recovered/Resolved]
  - Thrombocytopenia [Recovered/Resolved]
